FAERS Safety Report 13972491 (Version 3)
Quarter: 2017Q4

REPORT INFORMATION
  Report Type: Spontaneous
  Country: JP (occurrence: JP)
  Receive Date: 20170915
  Receipt Date: 20171214
  Transmission Date: 20180321
  Serious: Yes (Death)
  Sender: FDA-Public Use
  Company Number: PHJP2017JP028330

PATIENT
  Age: 68 Year
  Sex: Male
  Weight: 66.8 kg

DRUGS (4)
  1. PREDONINE [Suspect]
     Active Substance: PREDNISOLONE
     Indication: PROPHYLAXIS
     Dosage: 60 MG, QD
     Route: 041
     Dates: start: 20170906
  2. NEORAL [Suspect]
     Active Substance: CYCLOSPORINE
     Indication: APLASTIC ANAEMIA
     Dosage: 125 MG, BID
     Route: 048
     Dates: start: 20170906
  3. REVOLADE TAB [Suspect]
     Active Substance: ELTROMBOPAG
     Indication: APLASTIC ANAEMIA
     Dosage: 75 MG, QD
     Route: 048
     Dates: start: 20170906
  4. THYMOGLOBULINE [Suspect]
     Active Substance: LAPINE T-LYMPHOCYTE IMMUNE GLOBULIN
     Indication: APLASTIC ANAEMIA
     Dosage: 170 MG, QD
     Route: 041
     Dates: start: 20170906

REACTIONS (9)
  - Pulmonary alveolar haemorrhage [Fatal]
  - Lymphocyte percentage increased [Fatal]
  - Red blood cell count decreased [Fatal]
  - Immunodeficiency [Fatal]
  - Sepsis [Fatal]
  - White blood cell count decreased [Fatal]
  - Neutrophil percentage decreased [Fatal]
  - Platelet count decreased [Fatal]
  - Reticulocyte percentage decreased [Fatal]

NARRATIVE: CASE EVENT DATE: 20170906
